FAERS Safety Report 17812699 (Version 1)
Quarter: 2020Q2

REPORT INFORMATION
  Report Type: Spontaneous
  Country: US (occurrence: US)
  Receive Date: 20200521
  Receipt Date: 20200521
  Transmission Date: 20200714
  Serious: Yes (Life-Threatening)
  Sender: FDA-Public Use
  Company Number: US-SA-2020SA130773

PATIENT
  Age: 49 Year
  Sex: Female

DRUGS (1)
  1. FERRLECIT [Suspect]
     Active Substance: SODIUM FERRIC GLUCONATE COMPLEX
     Indication: ANAEMIA
     Dosage: 250 MG, 1X
     Route: 042
     Dates: start: 20200514, end: 20200514

REACTIONS (7)
  - Back pain [Recovered/Resolved]
  - Nausea [Recovered/Resolved]
  - Abdominal pain [Recovered/Resolved]
  - Abdominal pain upper [Recovered/Resolved]
  - Hyperhidrosis [Recovered/Resolved]
  - Hypoaesthesia [Recovered/Resolved]
  - Paraesthesia [Recovered/Resolved]

NARRATIVE: CASE EVENT DATE: 20200514
